FAERS Safety Report 4332530-5 (Version None)
Quarter: 2004Q2

REPORT INFORMATION
  Report Type: 
  Country: None (occurrence: None)
  Receive Date: 20040401
  Receipt Date: 20040317
  Transmission Date: 20050107
  Serious: Yes (Congenital Anomaly)
  Sender: FDA-Public Use
  Company Number: 2004-06809

PATIENT
  Age: 98 Day
  Sex: Male
  Weight: 1.406 kg

DRUGS (6)
  1. VIREAD [Suspect]
     Indication: HIV INFECTION
     Dosage: 300 MG, ONCE A DAY, ORAL
     Route: 048
     Dates: start: 20030908
  2. LAMIVUDINE (LAMIVUDINE) [Concomitant]
  3. NELFINAVIR (NELFINAVIR) [Concomitant]
  4. NEVIRAPINE (NEVIRAPINE) [Concomitant]
  5. ZIDOVUDINE [Concomitant]
  6. LOPINAVIR/RITONAVIR [Concomitant]

REACTIONS (3)
  - CONGENITAL CYSTIC LUNG [None]
  - MATERNAL DRUGS AFFECTING FOETUS [None]
  - PREMATURE BABY [None]
